FAERS Safety Report 5474136-0 (Version None)
Quarter: 2007Q4

REPORT INFORMATION
  Report Type: 
  Country: None (occurrence: None)
  Receive Date: 20071002
  Receipt Date: 20070920
  Transmission Date: 20080405
  Serious: Yes (Other)
  Sender: FDA-Public Use
  Company Number: HQWYE242620SEP07

PATIENT
  Sex: Female

DRUGS (4)
  1. TRIQUILAR [Suspect]
     Indication: ORAL CONTRACEPTION
     Route: 048
     Dates: start: 20070601, end: 20070906
  2. TEGRETOL [Concomitant]
     Indication: CONVULSION
  3. TEGRETOL [Concomitant]
     Indication: PROPHYLAXIS
  4. TEGRETOL [Concomitant]
     Indication: CEREBRAL DISORDER

REACTIONS (2)
  - CONVULSION [None]
  - METRORRHAGIA [None]
